FAERS Safety Report 8848146 (Version 2)
Quarter: 2012Q4

REPORT INFORMATION
  Report Type: 
  Country: US (occurrence: US)
  Receive Date: 20121018
  Receipt Date: 20121214
  Transmission Date: 20130627
  Serious: Yes (Hospitalization, Other)
  Sender: FDA-Public Use
  Company Number: US-SANOFI-AVENTIS-2012SA075413

PATIENT
  Sex: Male

DRUGS (2)
  1. APIDRA [Suspect]
     Dosage: 10-15 units four times a day.
     Route: 058
     Dates: start: 2008
  2. INFLUENZA VACCINE [Interacting]
     Route: 065

REACTIONS (3)
  - Dementia [Unknown]
  - Hypoglycaemic coma [Unknown]
  - Drug interaction [Unknown]
